FAERS Safety Report 8177779-9 (Version None)
Quarter: 2012Q1

REPORT INFORMATION
  Report Type: 
  Country: None (occurrence: None)
  Receive Date: 20120301
  Receipt Date: 20120215
  Transmission Date: 20120608
  Serious: Yes (Other)
  Sender: FDA-Public Use
  Company Number: JP-ROCHE-642289

PATIENT
  Age: 65 Year
  Sex: Female
  Weight: 46 kg

DRUGS (3)
  1. PEGASYS [Suspect]
     Indication: HEPATITIS C
     Route: 058
     Dates: start: 20080601, end: 20090601
  2. COPEGUS [Suspect]
     Indication: HEPATITIS C
     Dosage: NOTE: UNCERTAINTY
     Route: 048
     Dates: start: 20060801, end: 20080201
  3. COPEGUS [Suspect]

REACTIONS (3)
  - NEUROMYELITIS OPTICA [None]
  - PLATELET COUNT DECREASED [None]
  - MULTIPLE SCLEROSIS [None]
